FAERS Safety Report 16809044 (Version 1)
Quarter: 2019Q4

REPORT INFORMATION
  Report Type: Spontaneous
  Country: US (occurrence: US)
  Receive Date: 20190914
  Receipt Date: 20190914
  Transmission Date: 20200122
  Serious: Yes (Other)
  Sender: FDA-Public Use
  Company Number: None

PATIENT
  Age: 55 Year
  Sex: Female
  Weight: 93.15 kg

DRUGS (11)
  1. TRAMADOL. [Concomitant]
     Active Substance: TRAMADOL
  2. HYDRALAZINE [Concomitant]
     Active Substance: HYDRALAZINE HYDROCHLORIDE
  3. LISINOPRIL. [Concomitant]
     Active Substance: LISINOPRIL
  4. RANITIDINE. [Concomitant]
     Active Substance: RANITIDINE
  5. MAXIMUM STRENGTH RANITIDINE [Suspect]
     Active Substance: RANITIDINE HYDROCHLORIDE
     Indication: DYSPEPSIA
     Dosage: ?          QUANTITY:1 TABLET(S);?
     Route: 048
     Dates: start: 20161013, end: 20190913
  6. TOPIRAMATE. [Concomitant]
     Active Substance: TOPIRAMATE
  7. GABAPENTIN. [Concomitant]
     Active Substance: GABAPENTIN
  8. CLOPIDOGREL [Concomitant]
     Active Substance: CLOPIDOGREL BISULFATE
  9. FLUOXETINE [Concomitant]
     Active Substance: FLUOXETINE HYDROCHLORIDE
  10. SIMVISTATIN [Concomitant]
     Active Substance: SIMVASTATIN
  11. HYDROCHLOROTHIAZIDE. [Concomitant]
     Active Substance: HYDROCHLOROTHIAZIDE

REACTIONS (3)
  - Gastrointestinal sounds abnormal [None]
  - Abdominal pain upper [None]
  - Drug ineffective [None]

NARRATIVE: CASE EVENT DATE: 20190501
